FAERS Safety Report 7290403-2 (Version None)
Quarter: 2011Q1

REPORT INFORMATION
  Report Type: 
  Country: None (occurrence: None)
  Receive Date: 20110208
  Receipt Date: 20110208
  Transmission Date: 20110831
  Serious: Yes (Other)
  Sender: FDA-Public Use
  Company Number: None

PATIENT
  Age: 40 Year
  Sex: Female
  Weight: 61.2356 kg

DRUGS (1)
  1. SULFAMETHOXAZOLE [Suspect]
     Indication: URINARY TRACT INFECTION
     Dosage: 1 EVERY 12 HOURS PO
     Route: 048
     Dates: start: 20110202, end: 20110209

REACTIONS (10)
  - RASH [None]
  - FATIGUE [None]
  - PAIN [None]
  - URTICARIA [None]
  - ASTHENIA [None]
  - HEADACHE [None]
  - LUNG DISORDER [None]
  - DYSPNOEA [None]
  - PYREXIA [None]
  - COUGH [None]
